FAERS Safety Report 5829705-2 (Version None)
Quarter: 2008Q3

REPORT INFORMATION
  Report Type: 
  Country: None (occurrence: None)
  Receive Date: 20080729
  Receipt Date: 20080718
  Transmission Date: 20090109
  Serious: No
  Sender: FDA-Public Use
  Company Number: 20084992

PATIENT
  Sex: Female

DRUGS (10)
  1. LIORESAL [Suspect]
     Indication: MUSCLE SPASTICITY
     Dosage: \MCG, DAILY, INTRATHECAL
     Route: 037
  2. TIZANIDINE HCL [Concomitant]
  3. BACLOFEN [Concomitant]
  4. SYNTHROID [Concomitant]
  5. CADUET [Concomitant]
  6. LEXAPRO [Concomitant]
  7. TEGRETOL [Concomitant]
  8. LABETALOL HCL [Concomitant]
  9. NORVASC [Concomitant]
  10. LAMICTAL [Concomitant]

REACTIONS (22)
  - ASTHENIA [None]
  - BRAIN NEOPLASM [None]
  - CONVULSION [None]
  - DEVICE MALFUNCTION [None]
  - DIZZINESS [None]
  - DRY SKIN [None]
  - DYSARTHRIA [None]
  - DYSPEPSIA [None]
  - FATIGUE [None]
  - HEADACHE [None]
  - JOINT STIFFNESS [None]
  - LACRIMATION INCREASED [None]
  - MEMORY IMPAIRMENT [None]
  - MUSCLE SPASMS [None]
  - MUSCLE SPASTICITY [None]
  - MUSCLE TWITCHING [None]
  - MYALGIA [None]
  - NO THERAPEUTIC RESPONSE [None]
  - PAIN [None]
  - TREMOR [None]
  - URINARY TRACT INFECTION [None]
  - WEIGHT ABNORMAL [None]
